FAERS Safety Report 12493324 (Version 2)
Quarter: 2017Q1

REPORT INFORMATION
  Report Type: Report from Study
  Country: VN (occurrence: VN)
  Receive Date: 20160623
  Receipt Date: 20170313
  Transmission Date: 20170428
  Serious: Yes (Other)
  Sender: FDA-Public Use
  Company Number: VN-009507513-1606VNM009473

PATIENT
  Age: 55 Year
  Sex: Female

DRUGS (1)
  1. HYZAAR [Suspect]
     Active Substance: HYDROCHLOROTHIAZIDE\LOSARTAN POTASSIUM
     Indication: HYPERTENSION
     Dosage: 12.5/50 MG (1 TABLET), QD (ONCE A DAY)
     Route: 048
     Dates: start: 20150714

REACTIONS (3)
  - Nephrolithiasis [Not Recovered/Not Resolved]
  - Hypotonia [Not Recovered/Not Resolved]
  - Anaemia [Not Recovered/Not Resolved]

NARRATIVE: CASE EVENT DATE: 20160606
